FAERS Safety Report 4579186-4 (Version None)
Quarter: 2005Q1

REPORT INFORMATION
  Report Type: 
  Country: None (occurrence: None)
  Receive Date: 20050208
  Receipt Date: 20050208
  Transmission Date: 20050727
  Serious: Yes (Other)
  Sender: FDA-Public Use
  Company Number: None

PATIENT
  Sex: Male

DRUGS (5)
  1. NIACIN [Suspect]
     Indication: HYPERTRIGLYCERIDAEMIA
     Dosage: 50 MG   TWICE DAILY  ORAL
     Route: 048
     Dates: start: 20050107, end: 20050125
  2. INDOMETHACIN [Concomitant]
  3. ASPIRIN [Concomitant]
  4. FOLIC ACID [Concomitant]
  5. LEVOTHYROXINE [Concomitant]

REACTIONS (2)
  - CHEST DISCOMFORT [None]
  - HEADACHE [None]
